FAERS Safety Report 10674631 (Version 1)
Quarter: 2014Q4

REPORT INFORMATION
  Report Type: Spontaneous
  Country: GB (occurrence: GB)
  Receive Date: 20141224
  Receipt Date: 20141224
  Transmission Date: 20150529
  Serious: Yes (Hospitalization)
  Sender: FDA-Public Use
  Company Number: GB-WATSON-2014-27482

PATIENT
  Age: 53 Year
  Sex: Female
  Weight: 65 kg

DRUGS (1)
  1. ATRACURIUM (UNKNOWN) [Suspect]
     Active Substance: ATRACURIUM
     Indication: ANAESTHESIA
     Dosage: 40 MG, UNK
     Route: 042
     Dates: start: 20141001, end: 20141001

REACTIONS (1)
  - Anaphylactoid reaction [Recovered/Resolved]

NARRATIVE: CASE EVENT DATE: 20141001
